FAERS Safety Report 8950870 (Version 1)
Quarter: 2012Q4

REPORT INFORMATION
  Report Type: Spontaneous
  Country: DE (occurrence: None)
  Receive Date: 20121128
  Receipt Date: 20121128
  Transmission Date: 20130627
  Serious: Yes (Hospitalization)
  Sender: FDA-Public Use
  Company Number: 2012-004143

PATIENT
  Age: 77 Year
  Sex: Female

DRUGS (5)
  1. ACTONEL (RISEDRONATE SODIUM) TABLET, 5MG [Suspect]
     Indication: OSTEOPOROSIS
     Route: 048
     Dates: start: 201211
  2. TAMBOCOR (FLECAINIDE ACETATE) [Concomitant]
  3. VALSARTAN (VALSARTAN) [Concomitant]
  4. ASPIRIN (ACETYLSALICYLIC ACID) [Concomitant]
  5. SIMVASTATIN (SIMVASTATIN) [Concomitant]

REACTIONS (2)
  - Syncope [None]
  - Vomiting [None]
